FAERS Safety Report 6236943-6 (Version None)
Quarter: 2009Q2

REPORT INFORMATION
  Report Type: 
  Country: None (occurrence: None)
  Receive Date: 20090619
  Receipt Date: 20090217
  Transmission Date: 20091009
  Serious: No
  Sender: FDA-Public Use
  Company Number: US-ASTRAZENECA-2009UW04494

PATIENT
  Age: 56 Year
  Sex: Female

DRUGS (5)
  1. SYMBICORT [Suspect]
     Indication: ASTHMA
     Dosage: 320 MCG, TWO PUFFS
     Route: 055
     Dates: start: 20090217, end: 20090217
  2. AVELOX [Concomitant]
  3. ZEGRID [Concomitant]
  4. PREDNISONE [Concomitant]
  5. BENADRYL [Concomitant]

REACTIONS (3)
  - DYSPNOEA [None]
  - NERVOUSNESS [None]
  - PHARYNGEAL OEDEMA [None]
